FAERS Safety Report 17679508 (Version 1)
Quarter: 2020Q2

REPORT INFORMATION
  Report Type: Spontaneous
  Country: US (occurrence: US)
  Receive Date: 20200417
  Receipt Date: 20200417
  Transmission Date: 20200714
  Serious: Yes (Life-Threatening, Hospitalization)
  Sender: FDA-Public Use
  Company Number: US-MYLANLABS-2020M1037717

PATIENT
  Age: 55 Year
  Sex: Female

DRUGS (1)
  1. TRAZODONE [Suspect]
     Active Substance: TRAZODONE HYDROCHLORIDE
     Indication: MAJOR DEPRESSION
     Route: 048

REACTIONS (18)
  - Ventricular tachycardia [Recovered/Resolved]
  - Hypokalaemia [Recovering/Resolving]
  - Balance disorder [Recovered/Resolved]
  - Unresponsive to stimuli [Recovered/Resolved]
  - Atrioventricular block second degree [Recovered/Resolved]
  - Suicide attempt [Recovering/Resolving]
  - Myocardial infarction [Recovering/Resolving]
  - Atrioventricular block first degree [Recovered/Resolved]
  - Electrocardiogram QT prolonged [Recovering/Resolving]
  - Mental disorder [Recovering/Resolving]
  - Hypertension [Recovering/Resolving]
  - Intentional overdose [Unknown]
  - Altered state of consciousness [Recovered/Resolved]
  - Generalised tonic-clonic seizure [Recovered/Resolved]
  - Cardiogenic shock [Recovered/Resolved]
  - Wandering pacemaker [Recovering/Resolving]
  - Nodal rhythm [Recovered/Resolved]
  - Pneumonia aspiration [Recovering/Resolving]
